FAERS Safety Report 18027974 (Version 3)
Quarter: 2021Q2

REPORT INFORMATION
  Report Type: Spontaneous
  Country: US (occurrence: US)
  Receive Date: 20200716
  Receipt Date: 20210628
  Transmission Date: 20210717
  Serious: Yes (Other)
  Sender: FDA-Public Use
  Company Number: US-GLAXOSMITHKLINE-US2020133128

PATIENT
  Sex: Male

DRUGS (7)
  1. RANITIDINE. [Suspect]
     Active Substance: RANITIDINE
     Dosage: UNK
     Route: 065
  2. RANITIDINE HCI [Suspect]
     Active Substance: RANITIDINE HYDROCHLORIDE
     Dosage: UNK
     Route: 065
  3. ZANTAC [Suspect]
     Active Substance: RANITIDINE HYDROCHLORIDE
     Indication: HIATUS HERNIA
     Dosage: 300 MG, QD
     Route: 065
     Dates: start: 198301, end: 201901
  4. RANITIDINE. [Suspect]
     Active Substance: RANITIDINE
     Indication: HIATUS HERNIA
     Dosage: 150 MG, QD
     Route: 065
     Dates: start: 200001, end: 201911
  5. RANITIDINE. [Suspect]
     Active Substance: RANITIDINE
     Indication: HIATUS HERNIA
     Dosage: 150 MG, QD
     Route: 065
     Dates: start: 200001, end: 201911
  6. ZANTAC [Suspect]
     Active Substance: RANITIDINE HYDROCHLORIDE
     Dosage: UNK
     Route: 065
  7. ZANTAC [Suspect]
     Active Substance: RANITIDINE HYDROCHLORIDE
     Indication: HIATUS HERNIA
     Dosage: 300 MG, QD
     Route: 065
     Dates: start: 198301, end: 201901

REACTIONS (2)
  - Prostate cancer [Unknown]
  - Prostatic disorder [Unknown]
